FAERS Safety Report 4962330-4 (Version None)
Quarter: 2006Q1

REPORT INFORMATION
  Report Type: 
  Country: None (occurrence: None)
  Receive Date: 20060329
  Receipt Date: 20060322
  Transmission Date: 20060701
  Serious: Yes (Hospitalization)
  Sender: FDA-Public Use
  Company Number: 2006BI004443

PATIENT
  Age: 50 Year
  Sex: Male
  Weight: 62.1428 kg

DRUGS (2)
  1. AVONEX [Suspect]
     Indication: MULTIPLE SCLEROSIS
     Dosage: IM
     Route: 030
     Dates: end: 20060201
  2. MULTIPLE MEDICATIONS [Concomitant]

REACTIONS (7)
  - ARTHRALGIA [None]
  - BLINDNESS [None]
  - CONVULSION [None]
  - DEHYDRATION [None]
  - HYPERTENSION [None]
  - INCOHERENT [None]
  - WEIGHT DECREASED [None]
